FAERS Safety Report 7736429-3 (Version None)
Quarter: 2011Q3

REPORT INFORMATION
  Report Type: 
  Country: None (occurrence: None)
  Receive Date: 20110908
  Receipt Date: 20110905
  Transmission Date: 20111222
  Serious: Yes (Other)
  Sender: FDA-Public Use
  Company Number: DE-AMGEN-DEUSP2011045322

PATIENT
  Age: 75 Year
  Sex: Female

DRUGS (2)
  1. NEULASTA [Suspect]
     Indication: MYELODYSPLASTIC SYNDROME
  2. MISTLETOE [Concomitant]
     Indication: PRODUCT USED FOR UNKNOWN INDICATION

REACTIONS (1)
  - WHITE BLOOD CELL COUNT DECREASED [None]
